FAERS Safety Report 4735702-0 (Version None)
Quarter: 2005Q3

REPORT INFORMATION
  Report Type: 
  Country: None (occurrence: None)
  Receive Date: 20050803
  Receipt Date: 20050713
  Transmission Date: 20060218
  Serious: Yes (Other)
  Sender: FDA-Public Use
  Company Number: USA0507103016

PATIENT
  Sex: Male

DRUGS (4)
  1. CYMBALTA [Suspect]
     Dosage: 30 MG
  2. NEURONTIN [Concomitant]
  3. ... [Concomitant]
  4. ... [Concomitant]

REACTIONS (2)
  - CONVULSION [None]
  - HALLUCINATION, VISUAL [None]
